FAERS Safety Report 17316537 (Version 4)
Quarter: 2020Q2

REPORT INFORMATION
  Report Type: Spontaneous
  Country: JP (occurrence: JP)
  Receive Date: 20200124
  Receipt Date: 20200406
  Transmission Date: 20200713
  Serious: Yes (Hospitalization, Other)
  Sender: FDA-Public Use
  Company Number: JP-009507513-2001JPN002399J

PATIENT
  Age: 61 Year
  Sex: Male

DRUGS (2)
  1. ZERBAXA [Suspect]
     Active Substance: CEFTOLOZANE SULFATE\TAZOBACTAM SODIUM
     Indication: PNEUMONIA PSEUDOMONAL
     Dosage: 1500 MILLIGRAM, TID
     Route: 041
     Dates: start: 20200107, end: 20200120
  2. FEXOFENADINE HYDROCHLORIDE. [Suspect]
     Active Substance: FEXOFENADINE HYDROCHLORIDE
     Indication: ERYTHEMA MULTIFORME
     Dosage: 60 MILLIGRAM, BID
     Route: 048
     Dates: start: 20200116, end: 20200124

REACTIONS (4)
  - C-reactive protein abnormal [Unknown]
  - Pyrexia [Unknown]
  - Erythema multiforme [Recovered/Resolved]
  - Respiratory disorder [Unknown]

NARRATIVE: CASE EVENT DATE: 202001
